FAERS Safety Report 13607241 (Version 2)
Quarter: 2017Q3

REPORT INFORMATION
  Report Type: Spontaneous
  Country: US (occurrence: US)
  Receive Date: 20170602
  Receipt Date: 20170915
  Transmission Date: 20171127
  Serious: Yes (Hospitalization)
  Sender: FDA-Public Use
  Company Number: US-UNITED THERAPEUTICS-UNT-2017-007086

PATIENT
  Age: 64 Year
  Sex: Female
  Weight: 175.96 kg

DRUGS (3)
  1. ADCIRCA [Concomitant]
     Active Substance: TADALAFIL
     Indication: PRODUCT USED FOR UNKNOWN INDICATION
  2. ELIQUIS [Concomitant]
     Active Substance: APIXABAN
     Indication: PRODUCT USED FOR UNKNOWN INDICATION
  3. TYVASO [Suspect]
     Active Substance: TREPROSTINIL
     Indication: PULMONARY ARTERIAL HYPERTENSION
     Dosage: 18-54 MICROGRAMS, QID
     Dates: start: 20170112, end: 20170213

REACTIONS (12)
  - Cough [Unknown]
  - Pulmonary pain [Unknown]
  - Therapy cessation [Unknown]
  - Presyncope [Unknown]
  - Device use error [Unknown]
  - Liver disorder [Unknown]
  - Renal disorder [Unknown]
  - Pleural effusion [Unknown]
  - Choking [Unknown]
  - Patient dissatisfaction with treatment [Unknown]
  - Retching [Unknown]
  - Splenomegaly [Unknown]

NARRATIVE: CASE EVENT DATE: 2017
